FAERS Safety Report 4917022-4 (Version None)
Quarter: 2006Q1

REPORT INFORMATION
  Report Type: 
  Country: None (occurrence: None)
  Receive Date: 20060221
  Receipt Date: 20060207
  Transmission Date: 20060701
  Serious: Yes (Other)
  Sender: FDA-Public Use
  Company Number: 2006AP00652

PATIENT
  Age: 58 Year
  Sex: Male

DRUGS (12)
  1. OMEPRAL [Suspect]
     Indication: GASTRIC ULCER
     Route: 048
     Dates: start: 20060203
  2. OMEPRAL SODIUM [Concomitant]
     Route: 042
  3. CLARITHROMYCIN [Concomitant]
     Indication: HELICOBACTER INFECTION
     Dates: start: 20060131, end: 20060202
  4. AMOLIN [Concomitant]
     Indication: HELICOBACTER INFECTION
     Dates: start: 20060131, end: 20060202
  5. TAKEPRON [Concomitant]
     Indication: HELICOBACTER INFECTION
  6. RISPERIDONE [Concomitant]
     Indication: PSYCHOTIC DISORDER
  7. ZOTEPINE [Concomitant]
     Indication: PSYCHOTIC DISORDER
  8. HYBIPERIDEN HYDROCHLORIDE [Concomitant]
     Indication: PSYCHOTIC DISORDER
  9. LEVOMEPROMAZINE MALEATE [Concomitant]
     Indication: PSYCHOTIC DISORDER
     Dates: start: 20060131, end: 20060202
  10. NITRAZEPAM [Concomitant]
     Indication: PSYCHOTIC DISORDER
  11. CHLORPROMAZINE : PROMETHAZINE COMBINED DRUG [Concomitant]
     Indication: PSYCHOTIC DISORDER
     Route: 048
  12. TEPRENONE [Concomitant]
     Indication: PSYCHOTIC DISORDER

REACTIONS (1)
  - CONVULSION [None]
